FAERS Safety Report 4534060-4 (Version None)
Quarter: 2004Q4

REPORT INFORMATION
  Report Type: 
  Country: None (occurrence: None)
  Receive Date: 20041221
  Receipt Date: 20041221
  Transmission Date: 20050328
  Serious: Yes (Other)
  Sender: FDA-Public Use
  Company Number: None

PATIENT
  Age: 69 Year
  Sex: Male
  Weight: 93 kg

DRUGS (5)
  1. OXYCODONE HCL AND ACETAMINOPHEN [Suspect]
  2. OMEPRAZOLE [Concomitant]
  3. CODEINE 30/ACETAMINOPHEN [Concomitant]
  4. PAROXETINE HCL [Concomitant]
  5. ALBUTEROL [Concomitant]

REACTIONS (1)
  - HEADACHE [None]
